FAERS Safety Report 5780556-7 (Version None)
Quarter: 2008Q2

REPORT INFORMATION
  Report Type: 
  Country: None (occurrence: None)
  Receive Date: 20080620
  Receipt Date: 20080612
  Transmission Date: 20081010
  Serious: Yes (Other)
  Sender: FDA-Public Use
  Company Number: PHHY2008JP08612

PATIENT
  Sex: Male
  Weight: 66 kg

DRUGS (6)
  1. DIOVAN [Suspect]
     Indication: HYPERTENSION
     Dosage: 40
     Route: 048
     Dates: start: 20080208, end: 20080212
  2. DIOVAN [Suspect]
     Dosage: 80 MG, QD
     Route: 048
     Dates: start: 20080213, end: 20080302
  3. DIOVAN [Suspect]
     Dosage: 160 MG
     Route: 048
     Dates: start: 20080303, end: 20080512
  4. AMLODIPINE BESYLATE [Concomitant]
     Dosage: UNK
     Route: 048
     Dates: start: 20080214
  5. MEVALOTIN [Concomitant]
     Dosage: UNK
     Route: 048
     Dates: start: 20080214, end: 20080401
  6. RENIVACE [Concomitant]
     Indication: HYPERTENSION
     Dosage: 2.5 MG
     Route: 048

REACTIONS (8)
  - ALANINE AMINOTRANSFERASE INCREASED [None]
  - ASPARTATE AMINOTRANSFERASE INCREASED [None]
  - BLOOD CHOLESTEROL INCREASED [None]
  - BLOOD CREATINE PHOSPHOKINASE INCREASED [None]
  - BLOOD CREATININE INCREASED [None]
  - BLOOD TRIGLYCERIDES INCREASED [None]
  - HEPATIC FUNCTION ABNORMAL [None]
  - PROTEIN URINE PRESENT [None]
